FAERS Safety Report 9991278 (Version 1)
Quarter: 2014Q1

REPORT INFORMATION
  Report Type: Spontaneous
  Country: US (occurrence: US)
  Receive Date: 20140310
  Receipt Date: 20140310
  Transmission Date: 20141002
  Serious: No
  Sender: FDA-Public Use
  Company Number: US-ABBVIE-13P-163-1131802-00

PATIENT
  Age: 30 Year
  Sex: Female
  Weight: 74.91 kg

DRUGS (3)
  1. HUMIRA [Suspect]
     Indication: CROHN^S DISEASE
     Dosage: CROHN^S STARTER KIT
     Dates: start: 201306, end: 201306
  2. HUMIRA [Suspect]
     Dates: start: 201306, end: 201306
  3. HUMIRA [Suspect]
     Dates: start: 201307

REACTIONS (2)
  - Arthralgia [Not Recovered/Not Resolved]
  - Alopecia [Not Recovered/Not Resolved]
